FAERS Safety Report 8152292-3 (Version None)
Quarter: 2012Q1

REPORT INFORMATION
  Report Type: 
  Country: None (occurrence: None)
  Receive Date: 20120221
  Receipt Date: 20120213
  Transmission Date: 20120608
  Serious: No
  Sender: FDA-Public Use
  Company Number: US-PFIZER INC-2012041937

PATIENT
  Sex: Female

DRUGS (6)
  1. WELLBUTRIN [Concomitant]
     Indication: DEPRESSION
  2. XANAX [Concomitant]
     Indication: SLEEP DISORDER
  3. NEXIUM [Concomitant]
     Indication: GASTROOESOPHAGEAL REFLUX DISEASE
  4. NORGESTREL AND ETHINYL ESTRADIOL [Suspect]
     Indication: CONTRACEPTION
     Dosage: UNK
     Dates: end: 20120209
  5. ABILIFY [Concomitant]
     Indication: DEPRESSION
  6. PRISTIQ [Concomitant]
     Indication: DEPRESSION

REACTIONS (4)
  - MENORRHAGIA [None]
  - METRORRHAGIA [None]
  - IRRITABILITY [None]
  - ABDOMINAL PAIN [None]
